FAERS Safety Report 23076068 (Version 1)
Quarter: 2023Q4

REPORT INFORMATION
  Report Type: Report from Study
  Country: US (occurrence: None)
  Receive Date: 20231017
  Receipt Date: 20231017
  Transmission Date: 20240110
  Serious: Yes (Other)
  Sender: FDA-Public Use
  Company Number: 2023A063630

PATIENT
  Age: 79 Year
  Sex: Male

DRUGS (1)
  1. BRILINTA [Suspect]
     Active Substance: TICAGRELOR
     Indication: Cardiac disorder
     Route: 048
     Dates: start: 20230224, end: 20230314

REACTIONS (16)
  - Asthenia [Recovered/Resolved]
  - Nasopharyngitis [Recovered/Resolved]
  - Dyspnoea [Unknown]
  - Drug hypersensitivity [Unknown]
  - Epistaxis [Unknown]
  - Loss of consciousness [Unknown]
  - Chills [Unknown]
  - Tremor [Unknown]
  - Illness [Unknown]
  - Urinary tract infection [Unknown]
  - Cystitis [Unknown]
  - Chest pain [Unknown]
  - Nausea [Unknown]
  - Fatigue [Unknown]
  - Aphonia [Unknown]
  - Decreased appetite [Unknown]

NARRATIVE: CASE EVENT DATE: 20230302
